FAERS Safety Report 7628586-4 (Version None)
Quarter: 2011Q3

REPORT INFORMATION
  Report Type: 
  Country: None (occurrence: None)
  Receive Date: 20110722
  Receipt Date: 20110713
  Transmission Date: 20111222
  Serious: Yes (Other)
  Sender: FDA-Public Use
  Company Number: US-JNJFOC-20110705697

PATIENT
  Sex: Male
  Weight: 113.4 kg

DRUGS (4)
  1. LEVOTHYROXINE SODIUM [Concomitant]
     Indication: ILL-DEFINED DISORDER
  2. METFORMIN HCL [Concomitant]
     Indication: DIABETES MELLITUS
  3. STELARA [Suspect]
     Indication: PSORIASIS
     Route: 058
     Dates: start: 20110216
  4. LYRICA [Concomitant]
     Indication: ILL-DEFINED DISORDER

REACTIONS (2)
  - HEPATIC ENZYME INCREASED [None]
  - PLATELET COUNT DECREASED [None]
